FAERS Safety Report 11426169 (Version 2)
Quarter: 2015Q3

REPORT INFORMATION
  Report Type: Spontaneous
  Country: US (occurrence: US)
  Receive Date: 20150821
  Receipt Date: 20150903
  Transmission Date: 20151125
  Serious: No
  Sender: FDA-Public Use
  Company Number: US-ELI_LILLY_AND_COMPANY-US201011003772

PATIENT
  Sex: Female

DRUGS (4)
  1. GLUCOVANCE [Concomitant]
     Active Substance: GLYBURIDE\METFORMIN HYDROCHLORIDE
     Dosage: UNK, UNK
     Dates: end: 20101022
  2. HUMULIN 70/30 [Suspect]
     Active Substance: INSULIN HUMAN
     Indication: DIABETES MELLITUS
  3. LEVEMIR [Concomitant]
     Active Substance: INSULIN DETEMIR
     Dosage: UNK, UNK
     Dates: end: 20101022
  4. HUMALOG [Suspect]
     Active Substance: INSULIN LISPRO
     Indication: DIABETES MELLITUS
     Dosage: 2 U, DAILY (1/D)

REACTIONS (4)
  - Incorrect dose administered [Unknown]
  - Blood glucose increased [Unknown]
  - Hypertension [Unknown]
  - Drug dose omission [Unknown]

NARRATIVE: CASE EVENT DATE: 201011
